FAERS Safety Report 8945539 (Version 2)
Quarter: 2013Q1

REPORT INFORMATION
  Report Type: Spontaneous
  Country: US (occurrence: US)
  Receive Date: 20121205
  Receipt Date: 20130116
  Transmission Date: 20140127
  Serious: Yes (Other)
  Sender: FDA-Public Use
  Company Number: US-PFIZER INC-2012305231

PATIENT
  Age: 28 Year
  Sex: Female
  Weight: 52.15 kg

DRUGS (3)
  1. SERTRALINE HCL [Suspect]
     Indication: GENERALISED ANXIETY DISORDER
     Dosage: 100 MG, 1X/DAY
     Route: 048
     Dates: start: 201210
  2. SERTRALINE HCL [Suspect]
     Indication: DEPRESSION
  3. CLONAZEPAM [Concomitant]
     Indication: ANXIETY
     Dosage: UNK
     Dates: start: 201210

REACTIONS (1)
  - Coeliac disease [Not Recovered/Not Resolved]
